FAERS Safety Report 17545055 (Version 1)
Quarter: 2020Q1

REPORT INFORMATION
  Report Type: Spontaneous
  Country: SE (occurrence: SE)
  Receive Date: 20200316
  Receipt Date: 20200316
  Transmission Date: 20200409
  Serious: Yes (Other)
  Sender: FDA-Public Use
  Company Number: SE-ELI_LILLY_AND_COMPANY-SE202003002642

PATIENT
  Age: 39 Year
  Sex: Male
  Weight: 91 kg

DRUGS (6)
  1. DULOXETINE. [Suspect]
     Active Substance: DULOXETINE
     Indication: PANIC ATTACK
     Dosage: 1 TABLETT PER DAG
     Route: 065
     Dates: start: 20190302, end: 20190531
  2. OXASCAND [Concomitant]
     Active Substance: OXAZEPAM
     Dates: start: 20180105, end: 20200105
  3. DULOXETINE HYDROCHLORIDE. [Suspect]
     Active Substance: DULOXETINE HYDROCHLORIDE
     Indication: POST-TRAUMATIC STRESS DISORDER
     Dosage: UNK UNK, UNKNOWN
     Route: 065
  4. OXYNORM [Concomitant]
     Active Substance: OXYCODONE HYDROCHLORIDE
     Dates: start: 20181201, end: 20191001
  5. OXYCONTIN [Concomitant]
     Active Substance: OXYCODONE HYDROCHLORIDE
     Dates: start: 20181201, end: 20200210
  6. DULOXETINE. [Suspect]
     Active Substance: DULOXETINE
     Indication: BACK PAIN
     Dosage: UNK, UNKNOWN
     Route: 065

REACTIONS (7)
  - Hepatic enzyme abnormal [Recovered/Resolved]
  - Chills [Recovered/Resolved]
  - Renal function test abnormal [Recovered/Resolved]
  - Nightmare [Recovered/Resolved]
  - General physical health deterioration [Recovered/Resolved]
  - Hyperhidrosis [Recovered/Resolved]
  - Withdrawal syndrome [Recovered/Resolved]

NARRATIVE: CASE EVENT DATE: 2019
